FAERS Safety Report 17614593 (Version 1)
Quarter: 2020Q2

REPORT INFORMATION
  Report Type: Spontaneous
  Country: FR (occurrence: FR)
  Receive Date: 20200402
  Receipt Date: 20200402
  Transmission Date: 20200713
  Serious: Yes (Other)
  Sender: FDA-Public Use
  Company Number: FR-GLAXOSMITHKLINE-FR2020056507

PATIENT
  Age: 20 Year
  Sex: Male
  Weight: 68 kg

DRUGS (7)
  1. ALLOPURINOL. [Suspect]
     Active Substance: ALLOPURINOL
     Indication: PROPHYLAXIS
     Dosage: 300 MG, QD
     Route: 048
     Dates: start: 20200128, end: 202002
  2. ZELITREX [Suspect]
     Active Substance: VALACYCLOVIR HYDROCHLORIDE
     Indication: OPPORTUNISTIC INFECTION PROPHYLAXIS
     Dosage: 2 DF, QD
     Route: 048
     Dates: start: 202002, end: 202002
  3. VINCRISTINE SULFATE. [Concomitant]
     Active Substance: VINCRISTINE SULFATE
     Indication: LYMPHOMA
     Dosage: 1.4 MG/M2, QD
     Route: 041
     Dates: start: 20200131, end: 20200131
  4. CORTANCYL [Concomitant]
     Active Substance: PREDNISONE
     Indication: LYMPHOMA
     Dosage: 2 MG/KG, QD
     Route: 048
     Dates: start: 20200128, end: 20200131
  5. PREDNISOLONE. [Concomitant]
     Active Substance: PREDNISOLONE
     Indication: LYMPHOMA
     Dosage: 25 MG/M2, QD
     Route: 048
     Dates: start: 20200131, end: 20200204
  6. INNOHEP [Suspect]
     Active Substance: TINZAPARIN SODIUM
     Indication: THROMBOSIS PROPHYLAXIS
     Dosage: 12000 IU, QD
     Route: 058
     Dates: start: 20200129, end: 20200227
  7. CYCLOPHOSPHAMIDE. [Concomitant]
     Active Substance: CYCLOPHOSPHAMIDE
     Indication: LYMPHOMA
     Dosage: 750 MG/M2, QD
     Route: 041
     Dates: start: 20200131, end: 20200131

REACTIONS (1)
  - Hepatocellular injury [Recovered/Resolved]

NARRATIVE: CASE EVENT DATE: 202002
